FAERS Safety Report 25763830 (Version 1)
Quarter: 2025Q3

REPORT INFORMATION
  Report Type: Spontaneous
  Country: US (occurrence: US)
  Receive Date: 20250905
  Receipt Date: 20250905
  Transmission Date: 20251021
  Serious: No
  Sender: DOMPE FARMACEUTICI
  Company Number: US-FARMAPROD-202411-3989

PATIENT
  Sex: Female
  Weight: 72.57 kg

DRUGS (20)
  1. OXERVATE [Suspect]
     Active Substance: CENEGERMIN-BKBJ
     Indication: Neurotrophic keratopathy
     Route: 047
     Dates: start: 20241107
  2. RESTASIS [Concomitant]
     Active Substance: CYCLOSPORINE
  3. IVIZIA [Concomitant]
     Active Substance: POVIDONE
  4. REFRESH PLUS [Concomitant]
     Active Substance: CARBOXYMETHYLCELLULOSE SODIUM
  5. LATANOPROST [Concomitant]
     Active Substance: LATANOPROST
  6. VITAMIN B12 [Concomitant]
     Active Substance: CYANOCOBALAMIN
  7. VITAMIN D3 [Concomitant]
     Active Substance: CHOLECALCIFEROL
  8. OXYCODONE AND ACETAMINOPHEN [Concomitant]
     Active Substance: ACETAMINOPHEN\OXYCODONE HYDROCHLORIDE
  9. GINKGO [Concomitant]
     Active Substance: GINKGO
  10. NALOXONE HCL [Concomitant]
     Active Substance: NALOXONE HYDROCHLORIDE
  11. COENZYME Q10 [Concomitant]
     Active Substance: DIETARY SUPPLEMENT\UBIDECARENONE
  12. ENALAPRIL MALEATE [Concomitant]
     Active Substance: ENALAPRIL MALEATE
  13. HYDROXYZINE HYDROCHLORIDE [Concomitant]
     Active Substance: HYDROXYZINE HYDROCHLORIDE
  14. GABAPENTIN [Concomitant]
     Active Substance: GABAPENTIN
  15. CARVEDILOL [Concomitant]
     Active Substance: CARVEDILOL
  16. LOVASTATIN [Concomitant]
     Active Substance: LOVASTATIN
  17. NIFEDIPINE [Concomitant]
     Active Substance: NIFEDIPINE
  18. NIFEDIPINE [Concomitant]
     Active Substance: NIFEDIPINE
  19. PROLIA [Concomitant]
     Active Substance: DENOSUMAB
  20. CALCITRIOL [Concomitant]
     Active Substance: CALCITRIOL

REACTIONS (2)
  - Accidental overdose [Unknown]
  - Device use issue [Unknown]
